FAERS Safety Report 10175688 (Version 2)
Quarter: 2014Q2

REPORT INFORMATION
  Report Type: Spontaneous
  Country: CN (occurrence: CN)
  Receive Date: 20140516
  Receipt Date: 20140516
  Transmission Date: 20141212
  Serious: Yes (Death, Hospitalization)
  Sender: FDA-Public Use
  Company Number: CN-ORION CORPORATION ORION PHARMA-ENT 2013-0116

PATIENT
  Age: 66 Year
  Sex: Male

DRUGS (4)
  1. COMTAN [Suspect]
     Indication: PARKINSON^S DISEASE
     Route: 048
     Dates: start: 20130601, end: 20130620
  2. MADOPAR [Concomitant]
     Route: 065
     Dates: start: 20130601, end: 20130620
  3. MEDOPA [Concomitant]
     Route: 065
  4. BAYASPIRIN [Concomitant]
     Route: 065
     Dates: start: 201304

REACTIONS (2)
  - Acute leukaemia [Fatal]
  - Depressed level of consciousness [Unknown]
